FAERS Safety Report 7822563-6 (Version None)
Quarter: 2011Q4

REPORT INFORMATION
  Report Type: 
  Country: None (occurrence: None)
  Receive Date: 20111018
  Receipt Date: 20111010
  Transmission Date: 20120403
  Serious: Yes (Other)
  Sender: FDA-Public Use
  Company Number: BR-ASTRAZENECA-2011SE61008

PATIENT
  Age: 58 Year
  Sex: Female
  Weight: 89 kg

DRUGS (6)
  1. METOPROLOL SUCCINATE [Suspect]
     Indication: HYPERTENSION
     Route: 048
     Dates: start: 20110501
  2. SEROQUEL [Suspect]
     Indication: INSOMNIA
     Route: 048
     Dates: start: 20110801
  3. INDAPAMIDE [Concomitant]
     Route: 048
  4. CYMBALTA [Concomitant]
     Route: 048
  5. CLONAZEPAM [Concomitant]
     Route: 048
  6. DECADRON [Concomitant]
     Route: 048

REACTIONS (3)
  - OFF LABEL USE [None]
  - LUNG NEOPLASM MALIGNANT [None]
  - INSOMNIA [None]
